FAERS Safety Report 21312344 (Version 3)
Quarter: 2023Q1

REPORT INFORMATION
  Report Type: Report from Study
  Country: GB (occurrence: GB)
  Receive Date: 20220909
  Receipt Date: 20230105
  Transmission Date: 20230417
  Serious: Yes (Other)
  Sender: FDA-Public Use
  Company Number: GB-JNJFOC-20170516914

PATIENT
  Age: 67 Year
  Sex: Male
  Weight: 69.4 kg

DRUGS (17)
  1. BORTEZOMIB [Suspect]
     Active Substance: BORTEZOMIB
     Indication: Plasma cell myeloma
     Dosage: 2.6 MG/M2, WEEKLY,ON DAYS 1,4,8,AND 11
     Route: 058
     Dates: start: 20170328, end: 20170407
  2. BORTEZOMIB [Suspect]
     Active Substance: BORTEZOMIB
     Dosage: 1.8MG/SQ.M,QW,LYOPHILIZED POWDER,DAYS1,4,8,11
     Route: 058
     Dates: start: 20170418
  3. DEXAMETHASONE [Suspect]
     Active Substance: DEXAMETHASONE
     Indication: Plasma cell myeloma
     Dosage: 20 MILLIGRAM (1, 2, 8, 9, 15, 16, 22 AND 23)
     Route: 048
     Dates: start: 20170328, end: 20170406
  4. DEXAMETHASONE [Suspect]
     Active Substance: DEXAMETHASONE
     Dosage: 12MG (ON DAYS 1, 2, 8, 9, 15, 16, 22 AND 23)
     Route: 048
     Dates: start: 20170418
  5. VENETOCLAX [Suspect]
     Active Substance: VENETOCLAX
     Indication: Plasma cell myeloma
     Dosage: 1 DOSAGE FORM, QD
     Route: 048
     Dates: start: 20170328
  6. ACYCLOVIR [Concomitant]
     Active Substance: ACYCLOVIR
     Indication: Supportive care
     Dosage: 800 MILLIGRAM, QD (DOSAGE FORM: UNSPECIFIED)
     Route: 048
     Dates: start: 20170327
  7. ACYCLOVIR [Concomitant]
     Active Substance: ACYCLOVIR
     Indication: Infection prophylaxis
     Dosage: 400 MILLIGRAM, QD (DOSAGE FORM: UNSPECIFIED)
     Route: 048
     Dates: start: 20170327
  8. ALLOPURINOL [Concomitant]
     Active Substance: ALLOPURINOL
     Indication: Supportive care
     Dosage: 300 MILLIGRAM, QD (DOSAGE FORM: UNSPECIFIED)
     Route: 048
     Dates: start: 20170327
  9. ALLOPURINOL [Concomitant]
     Active Substance: ALLOPURINOL
     Indication: Prophylaxis
  10. BACTRIM [Concomitant]
     Active Substance: SULFAMETHOXAZOLE\TRIMETHOPRIM
     Indication: Supportive care
     Dosage: 480 MILLIGRAM, QD (DOSAGE FORM: UNSPECIFIED)
     Route: 048
     Dates: start: 20170328
  11. BACTRIM [Concomitant]
     Active Substance: SULFAMETHOXAZOLE\TRIMETHOPRIM
     Indication: Infection prophylaxis
  12. BISOPROLOL [Concomitant]
     Active Substance: BISOPROLOL
     Indication: Hypertension
     Dosage: 25 MILLIGRAM, QD (DOSAGE FORM: UNSPECIFIED)
     Route: 048
     Dates: start: 20110224
  13. FUROSEMIDE [Concomitant]
     Active Substance: FUROSEMIDE
     Indication: Hypertension
     Dosage: 40 MILLIGRAM, QD (DOSAGE FORM: UNSPECIFIED)
     Route: 048
     Dates: start: 20170407, end: 20170407
  14. LANSOPRAZOLE [Concomitant]
     Active Substance: LANSOPRAZOLE
     Indication: Supportive care
     Dosage: 30 MILLIGRAM, QD (DOSAGE FORM: UNSPECIFIED)
     Route: 048
     Dates: start: 20131108
  15. LANSOPRAZOLE [Concomitant]
     Active Substance: LANSOPRAZOLE
     Indication: Antacid therapy
  16. LOPERAMIDE [Concomitant]
     Active Substance: LOPERAMIDE
     Indication: Diarrhoea
     Dosage: 4 MILLIGRAM, PRN (DOSAGE FORM: UNSPECIFIED)
     Route: 048
     Dates: start: 20170527
  17. METOCLOPRAMIDE [Concomitant]
     Active Substance: METOCLOPRAMIDE
     Indication: Antiemetic supportive care
     Dosage: UNK (DOSAGE FORM: UNSPECIFIED, 10-20 MG PRN)
     Route: 048
     Dates: start: 20170328

REACTIONS (1)
  - Thrombocytopenia [Recovered/Resolved]

NARRATIVE: CASE EVENT DATE: 20170413
